FAERS Safety Report 8384972-9 (Version None)
Quarter: 2012Q2

REPORT INFORMATION
  Report Type: 
  Country: None (occurrence: None)
  Receive Date: 20120524
  Receipt Date: 20120517
  Transmission Date: 20120825
  Serious: Yes (Death, Hospitalization)
  Sender: FDA-Public Use
  Company Number: JP-CELGENEUS-087-50794-11083560

PATIENT
  Sex: Female
  Weight: 53 kg

DRUGS (16)
  1. VIDAZA [Suspect]
     Dosage: 75 MILLIGRAM/SQ. METER
     Route: 041
     Dates: start: 20110420, end: 20110426
  2. CEFEPIME [Concomitant]
     Route: 065
     Dates: start: 20110620, end: 20110623
  3. LASIX [Concomitant]
     Route: 065
     Dates: start: 20110729, end: 20110806
  4. LINTACIN [Concomitant]
     Route: 065
     Dates: start: 20110627, end: 20110705
  5. FUNGUARD [Concomitant]
     Route: 065
     Dates: start: 20110702, end: 20110712
  6. TEICOPLANIN [Concomitant]
     Route: 065
     Dates: start: 20110705, end: 20110710
  7. PRIMPERAN TAB [Concomitant]
     Route: 065
     Dates: start: 20110731, end: 20110731
  8. VIDAZA [Suspect]
     Dosage: 100 MILLIGRAM
     Route: 041
     Dates: start: 20110721, end: 20110727
  9. FUNGUARD [Concomitant]
     Route: 065
     Dates: start: 20110730, end: 20110806
  10. VIDAZA [Suspect]
     Dosage: 75 MICROGRAM/SQ. METER
     Route: 041
     Dates: start: 20110518, end: 20110524
  11. CIPROFLOXACIN [Concomitant]
     Route: 065
     Dates: start: 20110725, end: 20110806
  12. VIDAZA [Suspect]
     Dosage: 100 MILLIGRAM
     Route: 041
     Dates: start: 20110622, end: 20110628
  13. LEVOFLOXACIN [Concomitant]
     Route: 065
     Dates: start: 20110415, end: 20110714
  14. BACTRIM [Concomitant]
     Route: 065
     Dates: start: 20110420, end: 20110714
  15. FLUCONAZOLE [Concomitant]
     Route: 065
     Dates: start: 20110420, end: 20110714
  16. MEROPENEM [Concomitant]
     Route: 065
     Dates: start: 20110624, end: 20110712

REACTIONS (3)
  - ORAL INFECTION [None]
  - PNEUMONIA [None]
  - PYREXIA [None]
